FAERS Safety Report 9455496 (Version 2)
Quarter: 2013Q4

REPORT INFORMATION
  Report Type: Spontaneous
  Country: US (occurrence: US)
  Receive Date: 20130813
  Receipt Date: 20131028
  Transmission Date: 20140711
  Serious: Yes (Hospitalization)
  Sender: FDA-Public Use
  Company Number: US-BAYER-2013-096971

PATIENT
  Age: 35 Year
  Sex: Female
  Weight: 54.42 kg

DRUGS (3)
  1. MIRENA [Suspect]
     Indication: CONTRACEPTION
     Dosage: 20 MCG/24HR, CONT
     Route: 015
     Dates: start: 20080220, end: 20121218
  2. KEPPRA [Concomitant]
     Indication: CONVULSION
     Dosage: UNK
     Dates: start: 2005
  3. XANAX [Concomitant]

REACTIONS (8)
  - Uterine perforation [None]
  - Injury [None]
  - Abdominal pain lower [None]
  - Abdominal distension [None]
  - Breast pain [None]
  - Libido decreased [None]
  - Anxiety [None]
  - Emotional distress [None]
